FAERS Safety Report 5216878-8 (Version None)
Quarter: 2007Q1

REPORT INFORMATION
  Report Type: 
  Country: None (occurrence: None)
  Receive Date: 20070119
  Receipt Date: 20070112
  Transmission Date: 20070707
  Serious: No
  Sender: FDA-Public Use
  Company Number: 07H-163-0311797-00

PATIENT
  Age: 46 Year
  Sex: Male
  Weight: 95.2554 kg

DRUGS (1)
  1. LIDOCAINE 1% [Suspect]
     Indication: LOCAL ANAESTHESIA
     Dosage: INJECTION
     Dates: start: 20070110, end: 20070110

REACTIONS (6)
  - BLOOD PRESSURE INCREASED [None]
  - HYPERSENSITIVITY [None]
  - PARAESTHESIA [None]
  - SYNCOPE [None]
  - THROAT TIGHTNESS [None]
  - URTICARIA GENERALISED [None]
